FAERS Safety Report 24594681 (Version 1)
Quarter: 2024Q4

REPORT INFORMATION
  Report Type: Spontaneous
  Country: US (occurrence: US)
  Receive Date: 20241108
  Receipt Date: 20241108
  Transmission Date: 20250115
  Serious: No
  Sender: PFIZER
  Company Number: US-PFIZER INC-202400284662

PATIENT
  Age: 61 Year
  Sex: Female

DRUGS (4)
  1. XELJANZ XR [Suspect]
     Active Substance: TOFACITINIB CITRATE
     Indication: Scleroderma
     Dosage: 11 MG
     Dates: start: 202410
  2. XELJANZ XR [Suspect]
     Active Substance: TOFACITINIB CITRATE
     Indication: Undifferentiated connective tissue disease
  3. XELJANZ XR [Suspect]
     Active Substance: TOFACITINIB CITRATE
     Indication: Sjogren^s syndrome
  4. XELJANZ XR [Suspect]
     Active Substance: TOFACITINIB CITRATE
     Indication: Pulmonary hypertension

REACTIONS (2)
  - Nasopharyngitis [Unknown]
  - Off label use [Unknown]

NARRATIVE: CASE EVENT DATE: 20241001
